FAERS Safety Report 4925839-5 (Version None)
Quarter: 2006Q1

REPORT INFORMATION
  Report Type: 
  Country: None (occurrence: None)
  Receive Date: 20060228
  Receipt Date: 20050329
  Transmission Date: 20060701
  Serious: No
  Sender: FDA-Public Use
  Company Number: US-GLAXOSMITHKLINE-A0551769A

PATIENT
  Age: 38 Year
  Sex: Female

DRUGS (4)
  1. LAMICTAL [Suspect]
     Indication: BIPOLAR DISORDER
     Dosage: 25MG PER DAY
     Route: 048
     Dates: start: 20050326
  2. KLONOPIN [Concomitant]
  3. ESTAZOLAM [Concomitant]
  4. CITRUCEL [Concomitant]

REACTIONS (4)
  - DIZZINESS [None]
  - LOCAL SWELLING [None]
  - NAUSEA [None]
  - RASH [None]
